FAERS Safety Report 5027830-X (Version None)
Quarter: 2006Q2

REPORT INFORMATION
  Report Type: 
  Country: None (occurrence: None)
  Receive Date: 20060612
  Receipt Date: 20060601
  Transmission Date: 20061013
  Serious: Yes (Hospitalization)
  Sender: FDA-Public Use
  Company Number: 2006-143586-NL

PATIENT
  Age: 75 Year
  Sex: Male

DRUGS (5)
  1. DANAPAROID SODIUM [Suspect]
     Indication: DISSEMINATED INTRAVASCULAR COAGULATION
     Dosage: INTRAVENOUS DRIP
     Route: 042
     Dates: start: 20051114, end: 20051121
  2. ANTITHROMBIN III [Concomitant]
     Indication: DISSEMINATED INTRAVASCULAR COAGULATION
     Route: 042
  3. CEFAZOLIN SODIUM [Concomitant]
     Indication: OPEN FRACTURE
     Route: 041
  4. AMIKACIN SULFATE [Concomitant]
     Indication: OPEN FRACTURE
     Dates: start: 20051114, end: 20051119
  5. SACCARATED IRON OXIDE [Concomitant]
     Indication: IRON DEFICIENCY ANAEMIA
     Route: 041

REACTIONS (3)
  - ANAEMIA [None]
  - HEPATIC FUNCTION ABNORMAL [None]
  - WOUND INFECTION [None]
